FAERS Safety Report 4769976-7 (Version None)
Quarter: 2005Q3

REPORT INFORMATION
  Report Type: 
  Country: None (occurrence: None)
  Receive Date: 20050914
  Receipt Date: 20050914
  Transmission Date: 20060218
  Serious: Yes (Other)
  Sender: FDA-Public Use
  Company Number: None

PATIENT
  Age: 37 Year
  Sex: Female

DRUGS (2)
  1. PROVIGIL [Suspect]
     Indication: SOMNOLENCE
     Dosage: 200 MGM PO
     Route: 048
     Dates: start: 20041001, end: 20041028
  2. WELLBUTRIN [Concomitant]

REACTIONS (4)
  - ANXIETY [None]
  - DEPRESSION [None]
  - FATIGUE [None]
  - NAUSEA [None]
